FAERS Safety Report 9483128 (Version 2)
Quarter: 2013Q3

REPORT INFORMATION
  Report Type: Spontaneous
  Country: CA (occurrence: CA)
  Receive Date: 20130828
  Receipt Date: 20130828
  Transmission Date: 20140515
  Serious: Yes (Other)
  Sender: FDA-Public Use
  Company Number: CA-AMGEN-US140695

PATIENT
  Age: 67 Year
  Sex: Female
  Weight: 63.6 kg

DRUGS (3)
  1. ENBREL [Suspect]
     Indication: RHEUMATOID ARTHRITIS
     Dosage: 25 MG, 2 TIMES/WK
     Route: 058
     Dates: start: 20040518
  2. METHOTREXATE [Concomitant]
  3. METOPROLOL [Concomitant]

REACTIONS (1)
  - Rectal adenocarcinoma [Not Recovered/Not Resolved]
